FAERS Safety Report 4542214-6 (Version None)
Quarter: 2004Q4

REPORT INFORMATION
  Report Type: 
  Country: None (occurrence: None)
  Receive Date: 20041230
  Receipt Date: 20041220
  Transmission Date: 20050328
  Serious: Yes (Other)
  Sender: FDA-Public Use
  Company Number: US-JNJFOC-20041205818

PATIENT
  Sex: Female
  Weight: 50.9 kg

DRUGS (17)
  1. REMICADE [Suspect]
     Route: 042
  2. REMICADE [Suspect]
     Indication: CROHN'S DISEASE
     Route: 042
  3. IMODIUM [Concomitant]
  4. PRENATAL [Concomitant]
  5. PRENATAL [Concomitant]
  6. PRENATAL [Concomitant]
  7. PRENATAL [Concomitant]
  8. PRENATAL [Concomitant]
  9. PRENATAL [Concomitant]
  10. PRENATAL [Concomitant]
  11. PRENATAL [Concomitant]
  12. PRENATAL [Concomitant]
  13. PRENATAL [Concomitant]
  14. PRENATAL [Concomitant]
  15. PRENATAL [Concomitant]
  16. PRENATAL [Concomitant]
  17. ULTRAM [Concomitant]

REACTIONS (2)
  - ABORTION SPONTANEOUS [None]
  - DRUG EXPOSURE DURING PREGNANCY [None]
